FAERS Safety Report 26138771 (Version 3)
Quarter: 2025Q4

REPORT INFORMATION
  Report Type: Spontaneous
  Country: US (occurrence: US)
  Receive Date: 20251210
  Receipt Date: 20251216
  Transmission Date: 20260118
  Serious: No
  Sender: SANDOZ
  Company Number: US-SANDOZ-SDZ2025US093199

PATIENT
  Sex: Male

DRUGS (3)
  1. HYCAMTIN [Suspect]
     Active Substance: TOPOTECAN HYDROCHLORIDE
     Dosage: 0.75 MG, QD (0.75 MG (BY MOUTH), STRONGTH: 0.25MG
     Route: 048
     Dates: start: 202510
  2. HYCAMTIN [Suspect]
     Active Substance: TOPOTECAN HYDROCHLORIDE
     Indication: Neoplasm malignant
     Dosage: 2 MG, QD (2 MG, TUESDAY, WEDNESDAY, THU SDAY, FRIDAY, AND SATURDAY EVERY 21 DAYS), STRONGTH: 1MG
     Route: 048
     Dates: start: 202510
  3. NEULASTA [Concomitant]
     Active Substance: PEGFILGRASTIM
     Indication: Product used for unknown indication
     Dosage: NEULASTA SYRINGE
     Route: 065

REACTIONS (1)
  - Peripheral swelling [Unknown]
